FAERS Safety Report 25089558 (Version 1)
Quarter: 2025Q1

REPORT INFORMATION
  Report Type: Spontaneous
  Country: US (occurrence: None)
  Receive Date: 20250317
  Receipt Date: 20250317
  Transmission Date: 20250409
  Serious: Yes (Life-Threatening, Hospitalization)
  Sender: FDA-CTU
  Company Number: None

PATIENT
  Age: 72 Year
  Sex: Female
  Weight: 32.8 kg

DRUGS (2)
  1. CETACAINE ANESTHETIC [Suspect]
     Active Substance: BENZOCAINE\BUTAMBEN\TETRACAINE HYDROCHLORIDE
     Indication: Bronchoscopy
     Route: 048
     Dates: start: 20250106, end: 20250107
  2. METHYLENE BLUE [Concomitant]
     Active Substance: METHYLENE BLUE
     Dates: start: 20250106, end: 20250106

REACTIONS (5)
  - Pneumonia [None]
  - Lung abscess [None]
  - Hypoxia [None]
  - PO2 increased [None]
  - Methaemoglobinaemia [None]

NARRATIVE: CASE EVENT DATE: 20250106
